FAERS Safety Report 16837907 (Version 7)
Quarter: 2021Q4

REPORT INFORMATION
  Report Type: Report from Study
  Country: GB (occurrence: GB)
  Receive Date: 20190923
  Receipt Date: 20211004
  Transmission Date: 20220304
  Serious: Yes (Life-Threatening, Hospitalization)
  Sender: FDA-Public Use
  Company Number: GB-JNJFOC-20190919975

PATIENT
  Age: 56 Year
  Sex: Male
  Weight: 76.3 kg

DRUGS (8)
  1. BORTEZOMIB [Suspect]
     Active Substance: BORTEZOMIB
     Indication: Plasma cell myeloma
     Dosage: 2.5 MILLIGRAM
     Route: 058
     Dates: start: 20190128
  2. MELPHALAN [Suspect]
     Active Substance: MELPHALAN
     Indication: Plasma cell myeloma
     Dosage: 395 MILLIGRAM
     Route: 042
     Dates: start: 20190808
  3. CYCLOPHOSPHAMIDE [Suspect]
     Active Substance: CYCLOPHOSPHAMIDE
     Indication: Plasma cell myeloma
     Dosage: 2900 MILLIGRAM
     Route: 042
     Dates: start: 20190514
  4. DEXAMETHASONE [Suspect]
     Active Substance: DEXAMETHASONE
     Indication: Plasma cell myeloma
     Dosage: 20 MILLIGRAM
     Route: 048
     Dates: start: 20190128
  5. LENALIDOMIDE [Suspect]
     Active Substance: LENALIDOMIDE
     Indication: Plasma cell myeloma
     Dosage: 20 MILLIGRAM, Q3WEEKS
     Route: 048
     Dates: start: 20190128
  6. CYCLOPHOSPHAMIDE [Suspect]
     Active Substance: CYCLOPHOSPHAMIDE
     Indication: Plasma cell myeloma
     Dosage: 500 MILLIGRAM
     Route: 048
     Dates: start: 20190128
  7. DARATUMUMAB [Suspect]
     Active Substance: DARATUMUMAB
     Indication: Plasma cell myeloma
     Dosage: 1400 MILLIGRAM
     Route: 042
     Dates: start: 20190128
  8. FILGRASTIM [Suspect]
     Active Substance: FILGRASTIM
     Indication: Plasma cell myeloma
     Dosage: 48 INTERNATIONAL UNIT
     Route: 058
     Dates: start: 20190115

REACTIONS (2)
  - Respiratory tract infection fungal [Recovered/Resolved]
  - Delayed engraftment [Recovered/Resolved]

NARRATIVE: CASE EVENT DATE: 20190815
